FAERS Safety Report 15078754 (Version 1)
Quarter: 2018Q2

REPORT INFORMATION
  Report Type: Report from Study
  Country: US (occurrence: US)
  Receive Date: 20180627
  Receipt Date: 20180627
  Transmission Date: 20180711
  Serious: Yes (Other)
  Sender: FDA-Public Use
  Company Number: US-GILEAD-2017-0303865

PATIENT
  Age: 43 Year
  Sex: Female

DRUGS (1)
  1. LEDIPASVIR/SOFOSBUVIR [Suspect]
     Active Substance: LEDIPASVIR\SOFOSBUVIR
     Indication: CHRONIC HEPATITIS C
     Dosage: 1 DF, QD
     Route: 048
     Dates: start: 20171030

REACTIONS (30)
  - Hunger [Not Recovered/Not Resolved]
  - Oral pain [Unknown]
  - Contusion [Unknown]
  - Abdominal pain upper [Unknown]
  - Retching [Unknown]
  - Immune system disorder [Unknown]
  - Back pain [Unknown]
  - Blood pressure increased [Unknown]
  - Fatigue [Unknown]
  - Headache [Unknown]
  - Vomiting [Unknown]
  - Constipation [Unknown]
  - Weight decreased [Unknown]
  - Asthenia [Unknown]
  - Panic attack [Unknown]
  - Blindness [Unknown]
  - Polydipsia [Unknown]
  - Energy increased [Unknown]
  - Metrorrhagia [Unknown]
  - Skin odour abnormal [Unknown]
  - Food craving [Not Recovered/Not Resolved]
  - Nausea [Unknown]
  - Insomnia [Unknown]
  - Increased appetite [Unknown]
  - Gait disturbance [Unknown]
  - Weight increased [Unknown]
  - Dry mouth [Unknown]
  - Muscle atrophy [Unknown]
  - Arthralgia [Unknown]
  - Diarrhoea [Unknown]
